FAERS Safety Report 14314412 (Version 1)
Quarter: 2017Q4

REPORT INFORMATION
  Report Type: Spontaneous
  Country: US (occurrence: US)
  Receive Date: 20171221
  Receipt Date: 20171221
  Transmission Date: 20180321
  Serious: No
  Sender: FDA-Public Use
  Company Number: None

PATIENT
  Sex: Female

DRUGS (1)
  1. REVLIMID [Suspect]
     Active Substance: LENALIDOMIDE
     Indication: PLASMA CELL MYELOMA
     Dosage: 10MG 1 QD ORAL X21 DAYS
     Route: 048
     Dates: start: 20160817

REACTIONS (3)
  - Diarrhoea [None]
  - Tinnitus [None]
  - Muscle spasms [None]
